FAERS Safety Report 9261115 (Version 1)
Quarter: 2013Q2

REPORT INFORMATION
  Report Type: Spontaneous
  Country: US (occurrence: US)
  Receive Date: 20130429
  Receipt Date: 20130429
  Transmission Date: 20140414
  Serious: No
  Sender: FDA-Public Use
  Company Number: US-AMGEN-USASP2012068595

PATIENT
  Age: 58 Year
  Sex: Male

DRUGS (1)
  1. SENSIPAR [Suspect]
     Indication: HYPERPARATHYROIDISM SECONDARY
     Dosage: 30 MG, QHS
     Dates: start: 20121016

REACTIONS (3)
  - Asthenia [Recovering/Resolving]
  - Drug dose omission [Unknown]
  - Nausea [Unknown]
